FAERS Safety Report 4900058-7 (Version None)
Quarter: 2006Q1

REPORT INFORMATION
  Report Type: 
  Country: None (occurrence: None)
  Receive Date: 20060131
  Receipt Date: 20060124
  Transmission Date: 20060701
  Serious: Yes (Hospitalization)
  Sender: FDA-Public Use
  Company Number: A001-INS-3934

PATIENT
  Age: 85 Year
  Sex: Male

DRUGS (3)
  1. ARICEPT [Suspect]
     Indication: DEMENTIA
     Dosage: SEE IMAGE, ORAL
     Route: 048
     Dates: start: 20060111, end: 20060101
  2. ARICEPT [Suspect]
     Indication: DEMENTIA
     Dosage: SEE IMAGE, ORAL
     Route: 048
     Dates: start: 20051101, end: 20060110
  3. TRAZODONE (TRAZODONE) [Concomitant]

REACTIONS (4)
  - AGITATION [None]
  - CONFUSIONAL STATE [None]
  - NIGHTMARE [None]
  - PSYCHOTIC DISORDER [None]
